FAERS Safety Report 17330785 (Version 1)
Quarter: 2020Q1

REPORT INFORMATION
  Report Type: Spontaneous
  Country: DE (occurrence: DE)
  Receive Date: 20200128
  Receipt Date: 20200128
  Transmission Date: 20200409
  Serious: Yes (Hospitalization, Other)
  Sender: FDA-Public Use
  Company Number: DE-ASCEND THERAPEUTICS US, LLC-2079471

PATIENT
  Age: 31 Year
  Sex: Female

DRUGS (4)
  1. ESTROGEL [Suspect]
     Active Substance: ESTRADIOL
     Indication: ASSISTED REPRODUCTIVE TECHNOLOGY
     Dates: start: 20191210
  2. OVITRELLE (CHORIOGONADOTROPIN ALFA), UNKNOWN?INDICATION FOR USE: ASSIS [Suspect]
     Active Substance: CHORIOGONADOTROPIN ALFA
     Dates: start: 20191207
  3. UTROGEST (PROGESTERONE) (600 MILLIGRAM, LUTEAL 600MG) [Suspect]
     Active Substance: PROGESTERONE
     Dates: start: 20191210
  4. BEMFOLA (FOLLITROPIN ALFA) (225 IE), UNKNOWN?INDICATION FOR USE: ASSIS [Suspect]
     Active Substance: FOLLITROPIN
     Dates: start: 20191127, end: 20191206

REACTIONS (5)
  - Ovarian hyperstimulation syndrome [Not Recovered/Not Resolved]
  - Ascites [Not Recovered/Not Resolved]
  - Abdominal pain [Not Recovered/Not Resolved]
  - Dyspnoea [Not Recovered/Not Resolved]
  - Abdominal pain [Not Recovered/Not Resolved]

NARRATIVE: CASE EVENT DATE: 20191219
